FAERS Safety Report 12498872 (Version 1)
Quarter: 2016Q2

REPORT INFORMATION
  Report Type: Report from Study
  Country: US (occurrence: US)
  Receive Date: 20160627
  Receipt Date: 20160627
  Transmission Date: 20160815
  Serious: Yes (Hospitalization)
  Sender: FDA-Public Use
  Company Number: US-AMGEN-USASL2016081578

PATIENT
  Age: 27 Year
  Sex: Female

DRUGS (1)
  1. ENBREL [Suspect]
     Active Substance: ETANERCEPT
     Indication: PSORIATIC ARTHROPATHY
     Dosage: UNK UNK, UNK
     Route: 065

REACTIONS (7)
  - Hepatic enzyme increased [Unknown]
  - Psoriasis [Unknown]
  - Swelling [Unknown]
  - Eating disorder [Unknown]
  - Mobility decreased [Unknown]
  - Overdose [Unknown]
  - Gastric disorder [Unknown]

NARRATIVE: CASE EVENT DATE: 201605
